APPROVED DRUG PRODUCT: PAROXETINE HYDROCHLORIDE
Active Ingredient: PAROXETINE HYDROCHLORIDE
Strength: EQ 37.5MG BASE
Dosage Form/Route: TABLET, EXTENDED RELEASE;ORAL
Application: A209293 | Product #003 | TE Code: AB
Applicant: SCIECURE PHARMA INC
Approved: Jun 12, 2018 | RLD: No | RS: No | Type: RX